FAERS Safety Report 25176692 (Version 4)
Quarter: 2025Q3

REPORT INFORMATION
  Report Type: Report from Study
  Country: US (occurrence: US)
  Receive Date: 20250409
  Receipt Date: 20250901
  Transmission Date: 20251021
  Serious: Yes (Other)
  Sender: SUNOVION
  Company Number: US-SMPA-2025SPA003068AA

PATIENT
  Age: 74 Year
  Sex: Male

DRUGS (7)
  1. ORGOVYX [Suspect]
     Active Substance: RELUGOLIX
     Indication: Prostate cancer
     Dosage: 360 MG, SINGLE
     Route: 048
     Dates: start: 20250212, end: 20250212
  2. ORGOVYX [Suspect]
     Active Substance: RELUGOLIX
     Dosage: 120 MG, QD
     Route: 048
     Dates: start: 20250213
  3. ASPIRIN [Concomitant]
     Active Substance: ASPIRIN
  4. LIPITOR [Concomitant]
     Active Substance: ATORVASTATIN CALCIUM
  5. VITAMINS [Concomitant]
     Active Substance: VITAMINS
     Dosage: UNK, ONE DAILY
  6. PRILOSEC OTC [Concomitant]
     Active Substance: OMEPRAZOLE MAGNESIUM
     Route: 048
  7. PROPECIA [Concomitant]
     Active Substance: FINASTERIDE
     Route: 048

REACTIONS (6)
  - Electrocardiogram QT prolonged [Unknown]
  - Dyspnoea [Unknown]
  - Haematuria [Unknown]
  - Blood urine present [Recovering/Resolving]
  - Rash [Unknown]
  - Hot flush [Unknown]
